FAERS Safety Report 23717584 (Version 12)
Quarter: 2024Q4

REPORT INFORMATION
  Report Type: Report from Study
  Country: CN (occurrence: CN)
  Receive Date: 20240408
  Receipt Date: 20241227
  Transmission Date: 20250115
  Serious: Yes (Hospitalization)
  Sender: ROCHE
  Company Number: CN-ROCHE-3538129

PATIENT
  Age: 72 Year
  Sex: Female
  Weight: 55 kg

DRUGS (86)
  1. KADCYLA [Suspect]
     Active Substance: ADO-TRASTUZUMAB EMTANSINE
     Indication: HER2 positive breast cancer
     Dosage: ON 18/MAR/2024, THE PATIENT RECEIVED MOST RECENT DOSE OF MEDICINAL PRODUCT PRIOR TO THE EVENT.
     Route: 041
     Dates: start: 20240317
  2. LORATADINE [Concomitant]
     Active Substance: LORATADINE
     Dosage: QN (EVERY NIGHT)
     Route: 048
     Dates: start: 20240326, end: 20240326
  3. LORATADINE [Concomitant]
     Active Substance: LORATADINE
     Dosage: QN (EVERY NIGHT)
     Route: 048
     Dates: start: 20240326, end: 20240328
  4. POTASSIUM CHLORIDE [Concomitant]
     Active Substance: POTASSIUM CHLORIDE
     Dates: start: 20240611, end: 20240615
  5. POTASSIUM CHLORIDE [Concomitant]
     Active Substance: POTASSIUM CHLORIDE
     Route: 042
     Dates: start: 20240430, end: 20240504
  6. POTASSIUM CHLORIDE [Concomitant]
     Active Substance: POTASSIUM CHLORIDE
     Route: 042
     Dates: start: 20240613, end: 20240615
  7. POTASSIUM CHLORIDE [Concomitant]
     Active Substance: POTASSIUM CHLORIDE
     Route: 042
     Dates: start: 20240708, end: 20240708
  8. POTASSIUM CHLORIDE [Concomitant]
     Active Substance: POTASSIUM CHLORIDE
     Route: 042
     Dates: start: 20240710, end: 20240713
  9. POTASSIUM CHLORIDE [Concomitant]
     Active Substance: POTASSIUM CHLORIDE
     Dates: start: 20240328, end: 20240330
  10. POTASSIUM CHLORIDE [Concomitant]
     Active Substance: POTASSIUM CHLORIDE
     Dates: start: 20240801, end: 20240802
  11. POTASSIUM CHLORIDE [Concomitant]
     Active Substance: POTASSIUM CHLORIDE
     Route: 042
     Dates: start: 20240802, end: 20240809
  12. POTASSIUM CHLORIDE [Concomitant]
     Active Substance: POTASSIUM CHLORIDE
     Route: 042
     Dates: start: 20240330, end: 20240429
  13. POTASSIUM CHLORIDE [Concomitant]
     Active Substance: POTASSIUM CHLORIDE
     Route: 042
     Dates: start: 20240429, end: 20240504
  14. POTASSIUM CHLORIDE [Concomitant]
     Active Substance: POTASSIUM CHLORIDE
     Route: 042
     Dates: start: 20240520, end: 20240526
  15. POTASSIUM CHLORIDE [Concomitant]
     Active Substance: POTASSIUM CHLORIDE
     Dosage: ST
     Route: 042
     Dates: start: 20240804, end: 20240804
  16. POTASSIUM CHLORIDE [Concomitant]
     Active Substance: POTASSIUM CHLORIDE
     Dosage: ST
     Route: 042
     Dates: start: 20240822, end: 20240828
  17. POTASSIUM CHLORIDE [Concomitant]
     Active Substance: POTASSIUM CHLORIDE
     Dosage: ST
     Route: 042
     Dates: start: 20240825, end: 20240828
  18. POTASSIUM CHLORIDE [Concomitant]
     Active Substance: POTASSIUM CHLORIDE
     Dosage: ST
     Route: 042
     Dates: start: 20240828, end: 20240913
  19. ESOMEPRAZOLE [Concomitant]
     Active Substance: ESOMEPRAZOLE
     Route: 042
     Dates: start: 20240409, end: 20240413
  20. ESOMEPRAZOLE [Concomitant]
     Active Substance: ESOMEPRAZOLE
     Route: 042
     Dates: start: 20240430, end: 20240504
  21. ESOMEPRAZOLE [Concomitant]
     Active Substance: ESOMEPRAZOLE
     Route: 042
     Dates: start: 20240522, end: 20240526
  22. ESOMEPRAZOLE [Concomitant]
     Active Substance: ESOMEPRAZOLE
     Route: 042
     Dates: start: 20240613, end: 20240615
  23. ESOMEPRAZOLE [Concomitant]
     Active Substance: ESOMEPRAZOLE
     Route: 042
     Dates: start: 20240708, end: 20240708
  24. ESOMEPRAZOLE [Concomitant]
     Active Substance: ESOMEPRAZOLE
     Route: 042
     Dates: start: 20240710, end: 20240713
  25. ESOMEPRAZOLE [Concomitant]
     Active Substance: ESOMEPRAZOLE
     Route: 042
     Dates: start: 20240328, end: 20240330
  26. ESOMEPRAZOLE [Concomitant]
     Active Substance: ESOMEPRAZOLE
     Route: 042
     Dates: start: 20240802, end: 20240808
  27. DEXAMETHASONE SODIUM PHOSPHATE [Concomitant]
     Active Substance: DEXAMETHASONE SODIUM PHOSPHATE
     Route: 042
     Dates: start: 20240323, end: 20240323
  28. DEXAMETHASONE SODIUM PHOSPHATE [Concomitant]
     Active Substance: DEXAMETHASONE SODIUM PHOSPHATE
     Route: 042
     Dates: start: 20240323, end: 20240323
  29. TEPRENONE [Concomitant]
     Active Substance: TEPRENONE
     Route: 048
     Dates: start: 20240615
  30. METOPROLOL TARTRATE [Concomitant]
     Active Substance: METOPROLOL TARTRATE
     Indication: Arrhythmia
     Route: 048
     Dates: start: 20240801, end: 20240918
  31. METOPROLOL TARTRATE [Concomitant]
     Active Substance: METOPROLOL TARTRATE
     Route: 048
     Dates: start: 20240822, end: 20240917
  32. METOPROLOL TARTRATE [Concomitant]
     Active Substance: METOPROLOL TARTRATE
     Route: 048
     Dates: start: 20240912
  33. MAGNESIUM ISOGLYCYRRHIZINATE [Concomitant]
     Active Substance: MAGNESIUM ISOGLYCYRRHIZINATE
     Route: 050
     Dates: start: 20240802, end: 20240809
  34. MAGNESIUM ISOGLYCYRRHIZINATE [Concomitant]
     Active Substance: MAGNESIUM ISOGLYCYRRHIZINATE
     Route: 042
     Dates: start: 20240328, end: 20240330
  35. MAGNESIUM ISOGLYCYRRHIZINATE [Concomitant]
     Active Substance: MAGNESIUM ISOGLYCYRRHIZINATE
     Route: 042
     Dates: start: 20240409, end: 20240413
  36. MAGNESIUM ISOGLYCYRRHIZINATE [Concomitant]
     Active Substance: MAGNESIUM ISOGLYCYRRHIZINATE
     Route: 042
     Dates: start: 20240430, end: 20240504
  37. MAGNESIUM ISOGLYCYRRHIZINATE [Concomitant]
     Active Substance: MAGNESIUM ISOGLYCYRRHIZINATE
     Route: 042
     Dates: start: 20240522, end: 20240526
  38. MAGNESIUM ISOGLYCYRRHIZINATE [Concomitant]
     Active Substance: MAGNESIUM ISOGLYCYRRHIZINATE
     Route: 042
     Dates: start: 20240708, end: 20240711
  39. MAGNESIUM ISOGLYCYRRHIZINATE [Concomitant]
     Active Substance: MAGNESIUM ISOGLYCYRRHIZINATE
     Route: 042
     Dates: start: 20240825, end: 20240828
  40. ONDANSETRON HYDROCHLORIDE [Concomitant]
     Active Substance: ONDANSETRON HYDROCHLORIDE
     Route: 042
     Dates: start: 20240409, end: 20240413
  41. ONDANSETRON HYDROCHLORIDE [Concomitant]
     Active Substance: ONDANSETRON HYDROCHLORIDE
     Route: 042
     Dates: start: 20240430, end: 20240503
  42. ONDANSETRON HYDROCHLORIDE [Concomitant]
     Active Substance: ONDANSETRON HYDROCHLORIDE
     Route: 042
     Dates: start: 20240522, end: 20240526
  43. ONDANSETRON HYDROCHLORIDE [Concomitant]
     Active Substance: ONDANSETRON HYDROCHLORIDE
     Route: 042
     Dates: start: 20240613, end: 20240615
  44. ONDANSETRON HYDROCHLORIDE [Concomitant]
     Active Substance: ONDANSETRON HYDROCHLORIDE
     Route: 042
     Dates: start: 20240708, end: 20240708
  45. ONDANSETRON HYDROCHLORIDE [Concomitant]
     Active Substance: ONDANSETRON HYDROCHLORIDE
     Route: 042
     Dates: start: 20240710, end: 20240713
  46. THYMALFASIN [Concomitant]
     Active Substance: THYMALFASIN
     Route: 058
     Dates: start: 20230403, end: 20230409
  47. THYMALFASIN [Concomitant]
     Active Substance: THYMALFASIN
     Route: 058
     Dates: start: 20230424, end: 20230430
  48. THYMALFASIN [Concomitant]
     Active Substance: THYMALFASIN
     Route: 058
     Dates: start: 20230526, end: 20230601
  49. THYMALFASIN [Concomitant]
     Active Substance: THYMALFASIN
     Route: 058
     Dates: start: 20230613, end: 20230619
  50. THYMALFASIN [Concomitant]
     Active Substance: THYMALFASIN
     Route: 058
     Dates: start: 20230717, end: 20230723
  51. THYMALFASIN [Concomitant]
     Active Substance: THYMALFASIN
     Route: 058
     Dates: start: 20230803, end: 20230809
  52. THYMALFASIN [Concomitant]
     Active Substance: THYMALFASIN
     Route: 058
     Dates: start: 20230824, end: 20230830
  53. THYMALFASIN [Concomitant]
     Active Substance: THYMALFASIN
     Route: 058
     Dates: start: 20230925, end: 20231001
  54. THYMALFASIN [Concomitant]
     Active Substance: THYMALFASIN
     Route: 058
     Dates: start: 20231023, end: 20231029
  55. THYMALFASIN [Concomitant]
     Active Substance: THYMALFASIN
     Route: 058
     Dates: start: 20231120, end: 20231126
  56. THYMALFASIN [Concomitant]
     Active Substance: THYMALFASIN
     Dosage: ST
     Route: 058
     Dates: start: 20240801, end: 20240801
  57. THYMALFASIN [Concomitant]
     Active Substance: THYMALFASIN
     Dosage: ST
     Route: 058
     Dates: start: 20240804, end: 20240804
  58. THYMALFASIN [Concomitant]
     Active Substance: THYMALFASIN
     Dosage: ST
     Route: 058
     Dates: start: 20240807, end: 20240807
  59. THYMALFASIN [Concomitant]
     Active Substance: THYMALFASIN
     Dosage: BIW
     Route: 058
     Dates: start: 20240824, end: 20240828
  60. THYMALFASIN [Concomitant]
     Active Substance: THYMALFASIN
     Dosage: BIW
     Route: 058
     Dates: start: 20240828
  61. URSODIOL [Concomitant]
     Active Substance: URSODIOL
     Indication: Hepatic function abnormal
     Route: 048
     Dates: start: 20240328, end: 20240330
  62. URSODIOL [Concomitant]
     Active Substance: URSODIOL
     Route: 048
     Dates: start: 20240330, end: 20240408
  63. URSODIOL [Concomitant]
     Active Substance: URSODIOL
     Route: 048
     Dates: start: 20240408, end: 20240430
  64. URSODIOL [Concomitant]
     Active Substance: URSODIOL
     Route: 048
     Dates: start: 20240430, end: 20240520
  65. URSODIOL [Concomitant]
     Active Substance: URSODIOL
     Route: 048
     Dates: start: 20240520
  66. URSODIOL [Concomitant]
     Active Substance: URSODIOL
     Route: 048
     Dates: start: 20240613, end: 20240615
  67. URSODIOL [Concomitant]
     Active Substance: URSODIOL
     Route: 048
     Dates: start: 20240703, end: 20240713
  68. URSODIOL [Concomitant]
     Active Substance: URSODIOL
     Route: 048
     Dates: start: 20240803, end: 20240913
  69. URSODIOL [Concomitant]
     Active Substance: URSODIOL
     Route: 048
     Dates: start: 20241008
  70. FUROSEMIDE [Concomitant]
     Active Substance: FUROSEMIDE
     Route: 042
     Dates: start: 20240430, end: 20240430
  71. FUROSEMIDE [Concomitant]
     Active Substance: FUROSEMIDE
     Route: 042
     Dates: start: 20240613, end: 20240613
  72. FUROSEMIDE [Concomitant]
     Active Substance: FUROSEMIDE
     Route: 042
     Dates: start: 20240710, end: 20240710
  73. FUROSEMIDE [Concomitant]
     Active Substance: FUROSEMIDE
     Route: 042
     Dates: start: 20240409, end: 20240409
  74. FUROSEMIDE [Concomitant]
     Active Substance: FUROSEMIDE
     Dosage: ST
     Route: 050
     Dates: start: 20240802, end: 20240802
  75. AMPHOTERICIN B [Concomitant]
     Active Substance: AMPHOTERICIN B
     Route: 042
     Dates: start: 20240430, end: 20240430
  76. AMPHOTERICIN B [Concomitant]
     Active Substance: AMPHOTERICIN B
     Route: 042
     Dates: start: 20240522, end: 20240522
  77. AMPHOTERICIN B [Concomitant]
     Active Substance: AMPHOTERICIN B
     Route: 042
     Dates: start: 20240613, end: 20240613
  78. AMPHOTERICIN B [Concomitant]
     Active Substance: AMPHOTERICIN B
     Route: 042
     Dates: start: 20240409, end: 20240409
  79. LACTULOSE [Concomitant]
     Active Substance: LACTULOSE
     Route: 048
     Dates: start: 20240525, end: 20240525
  80. LACTULOSE [Concomitant]
     Active Substance: LACTULOSE
     Route: 048
     Dates: start: 20240504, end: 20240504
  81. GLYCYRRHIZIN [Concomitant]
     Active Substance: GLYCYRRHIZIN
     Indication: Hepatic function abnormal
     Route: 048
     Dates: start: 20240615
  82. ZOLPIDEM TARTRATE [Concomitant]
     Active Substance: ZOLPIDEM TARTRATE
     Dosage: QN
     Route: 048
     Dates: start: 20240803, end: 20240816
  83. ZOLPIDEM TARTRATE [Concomitant]
     Active Substance: ZOLPIDEM TARTRATE
     Dosage: QN
     Route: 048
     Dates: start: 20240828, end: 20240903
  84. ZOLPIDEM TARTRATE [Concomitant]
     Active Substance: ZOLPIDEM TARTRATE
     Dosage: QN
     Route: 048
     Dates: start: 20240912, end: 20240918
  85. ZOLPIDEM TARTRATE [Concomitant]
     Active Substance: ZOLPIDEM TARTRATE
     Dosage: QN
     Route: 048
     Dates: start: 20241008, end: 20241014
  86. AMIFOSTINE [Concomitant]
     Active Substance: AMIFOSTINE
     Dosage: ST
     Route: 042
     Dates: start: 20240802, end: 20240802

REACTIONS (12)
  - Myelosuppression [Recovered/Resolved]
  - Thrombocytopenia [Recovered/Resolved]
  - Platelet count decreased [Not Recovered/Not Resolved]
  - Hypokalaemia [Not Recovered/Not Resolved]
  - Epistaxis [Recovering/Resolving]
  - Arrhythmia [Not Recovered/Not Resolved]
  - Granulocytes abnormal [Not Recovered/Not Resolved]
  - Dyspepsia [Recovered/Resolved]
  - Liver disorder [Not Recovered/Not Resolved]
  - Sleep disorder [Recovered/Resolved]
  - Fatigue [Not Recovered/Not Resolved]
  - Spleen disorder [Not Recovered/Not Resolved]

NARRATIVE: CASE EVENT DATE: 20240322
